FAERS Safety Report 8841387 (Version 3)
Quarter: 2012Q4

REPORT INFORMATION
  Report Type: 
  Country: US (occurrence: US)
  Receive Date: 20121015
  Receipt Date: 20121119
  Transmission Date: 20130627
  Serious: No
  Sender: FDA-Public Use
  Company Number: US-VERTEX PHARMACEUTICAL INC.-2012-022178

PATIENT
  Age: 63 Year
  Sex: Male
  Weight: 100 kg

DRUGS (10)
  1. VX-950 (TELAPREVIR) [Suspect]
     Indication: HEPATITIS C
     Dosage: 750 mg, tid
     Route: 048
  2. RIBAPAK [Concomitant]
     Indication: HEPATITIS C
     Dosage: 600 mg, qd
  3. PEGASYS [Concomitant]
     Indication: HEPATITIS C
     Dosage: 180 ?g, UNK
  4. AUGMENTIN                          /00756801/ [Concomitant]
     Dosage: 875 mg, UNK
  5. VITAMIN D3 [Concomitant]
     Dosage: 1000 UNK, UNK
  6. PRAVASTATIN [Concomitant]
     Dosage: 10 mg, UNK
  7. FISH OIL [Concomitant]
  8. ALEVE [Concomitant]
  9. PHENERGAN                          /00033001/ [Concomitant]
     Dosage: 25 mg, UNK
  10. ZYRTEC [Concomitant]
     Dosage: 5 mg, UNK

REACTIONS (11)
  - Influenza like illness [Unknown]
  - Night sweats [Unknown]
  - Chills [Unknown]
  - Injection site erythema [Recovered/Resolved]
  - Haemorrhoidal haemorrhage [Unknown]
  - Rash macular [Recovered/Resolved]
  - Haemorrhoids [Unknown]
  - Vomiting [Unknown]
  - Diarrhoea [Unknown]
  - Anorectal discomfort [Recovered/Resolved]
  - Nausea [None]
